FAERS Safety Report 9943411 (Version 1)
Quarter: 2014Q1

REPORT INFORMATION
  Report Type: Report from Study
  Country: US (occurrence: US)
  Receive Date: 20140303
  Receipt Date: 20140303
  Transmission Date: 20141002
  Serious: No
  Sender: FDA-Public Use
  Company Number: US-ABBVIE-13P-163-1047158-00

PATIENT
  Age: 66 Year
  Sex: Female
  Weight: 93.98 kg

DRUGS (2)
  1. HUMIRA [Suspect]
     Indication: REITER^S SYNDROME
     Dates: start: 20130206
  2. HYDROCODONE [Concomitant]
     Indication: PAIN

REACTIONS (2)
  - Off label use [Not Recovered/Not Resolved]
  - Reiter^s syndrome [Not Recovered/Not Resolved]
